FAERS Safety Report 25034971 (Version 1)
Quarter: 2025Q1

REPORT INFORMATION
  Report Type: Spontaneous
  Country: TR (occurrence: TR)
  Receive Date: 20250304
  Receipt Date: 20250304
  Transmission Date: 20250409
  Serious: Yes (Hospitalization, Other)
  Sender: CHEPLAPHARM
  Company Number: None

PATIENT
  Age: 63 Year
  Sex: Male

DRUGS (12)
  1. OLANZAPINE [Suspect]
     Active Substance: OLANZAPINE
     Indication: Bipolar disorder
     Dosage: DAILY DOSE: 7.5 MILLIGRAM
     Dates: start: 2017
  2. OLANZAPINE [Suspect]
     Active Substance: OLANZAPINE
     Indication: Bipolar disorder
     Dosage: INCREASED TO 20 MG/DAY?DAILY DOSE: 20 MILLIGRAM
     Dates: start: 202007
  3. QUETIAPINE [Suspect]
     Active Substance: QUETIAPINE
     Indication: Bipolar disorder
     Dosage: DAILY DOSE: 200 MILLIGRAM
     Dates: start: 2017
  4. QUETIAPINE [Suspect]
     Active Substance: QUETIAPINE
     Indication: Bipolar disorder
     Dosage: DAILY DOSE: 300 MILLIGRAM
  5. LITHIUM [Suspect]
     Active Substance: LITHIUM
     Indication: Bipolar disorder
     Dosage: DAILY DOSE: 900 MILLIGRAM
     Dates: start: 2017, end: 202009
  6. VENLAFAXINE [Suspect]
     Active Substance: VENLAFAXINE HYDROCHLORIDE
     Indication: Bipolar disorder
     Dosage: DAILY DOSE: 37.5 MILLIGRAM
     Dates: start: 2017
  7. VALPROIC ACID [Suspect]
     Active Substance: VALPROIC ACID
     Indication: Bipolar disorder
     Dosage: DAILY DOSE: 1000 MILLIGRAM
     Dates: start: 202009
  8. RIVASTIGMINE [Suspect]
     Active Substance: RIVASTIGMINE
     Indication: Frontotemporal dementia
     Dates: start: 2020
  9. MEMANTINE [Suspect]
     Active Substance: MEMANTINE
     Indication: Frontotemporal dementia
     Dates: start: 2020
  10. Lorezepam [Concomitant]
     Dosage: DAILY DOSE: 2.5 MILLIGRAM
  11. DIAZEPAM [Concomitant]
     Active Substance: DIAZEPAM
     Dosage: DAILY DOSE: 10 MILLIGRAM
  12. BIPERIDEN [Concomitant]
     Active Substance: BIPERIDEN
     Dosage: DAILY DOSE: 2 MILLIGRAM

REACTIONS (4)
  - Frontotemporal dementia [Unknown]
  - Parkinsonism [Unknown]
  - Drug ineffective [Unknown]
  - Diabetes insipidus [Unknown]

NARRATIVE: CASE EVENT DATE: 20171101
